FAERS Safety Report 5078161-3 (Version None)
Quarter: 2006Q3

REPORT INFORMATION
  Report Type: 
  Country: None (occurrence: None)
  Receive Date: 20060808
  Receipt Date: 20060725
  Transmission Date: 20061208
  Serious: Yes (Other)
  Sender: FDA-Public Use
  Company Number: 02100-JPN-06-0344

PATIENT
  Age: 79 Year
  Sex: Male

DRUGS (5)
  1. CILOSTAZOL [Suspect]
     Indication: CEREBRAL INFARCTION
     Dosage: 200 MG ORAL
     Route: 048
     Dates: start: 20060722, end: 20060724
  2. WARFARIN SODIUM [Concomitant]
  3. ASPIRIN [Concomitant]
  4. IBUDILAST [Concomitant]
  5. ATORVASTATIN CACLIUM [Concomitant]

REACTIONS (1)
  - PANCYTOPENIA [None]
